FAERS Safety Report 8282577-1 (Version None)
Quarter: 2012Q2

REPORT INFORMATION
  Report Type: 
  Country: None (occurrence: None)
  Receive Date: 20120413
  Receipt Date: 20120403
  Transmission Date: 20120825
  Serious: Yes (Hospitalization)
  Sender: FDA-Public Use
  Company Number: FR-JNJFOC-20120401635

PATIENT
  Age: 26 Year
  Sex: Male

DRUGS (6)
  1. REMICADE [Suspect]
     Route: 042
     Dates: start: 20111024
  2. REMICADE [Suspect]
     Route: 042
     Dates: start: 20111226, end: 20111226
  3. REMICADE [Suspect]
     Indication: CROHN'S DISEASE
     Route: 042
  4. REMICADE [Suspect]
     Route: 042
  5. REMICADE [Suspect]
     Route: 042
  6. REMICADE [Suspect]
     Route: 042
     Dates: start: 20110519

REACTIONS (1)
  - CYTOLYTIC HEPATITIS [None]
